FAERS Safety Report 8748268 (Version 3)
Quarter: 2018Q2

REPORT INFORMATION
  Report Type: Report from Study
  Country: CA (occurrence: CA)
  Receive Date: 20120827
  Receipt Date: 20180611
  Transmission Date: 20180711
  Serious: Yes (Other)
  Sender: FDA-Public Use
  Company Number: CA-ROCHE-1104442

PATIENT
  Age: 52 Year
  Sex: Male

DRUGS (1)
  1. LUCENTIS [Suspect]
     Active Substance: RANIBIZUMAB
     Indication: DIABETIC RETINAL OEDEMA
     Dosage: 10 MG/ML
     Route: 050

REACTIONS (4)
  - Eye swelling [Unknown]
  - Cervical vertebral fracture [Unknown]
  - Drug effect decreased [Unknown]
  - Fall [Unknown]

NARRATIVE: CASE EVENT DATE: 20120616
